FAERS Safety Report 13462791 (Version 11)
Quarter: 2020Q1

REPORT INFORMATION
  Report Type: Spontaneous
  Country: US (occurrence: US)
  Receive Date: 20170420
  Receipt Date: 20200115
  Transmission Date: 20200409
  Serious: Yes (Hospitalization, Other)
  Sender: FDA-Public Use
  Company Number: US-PFIZER INC-2017088580

PATIENT
  Age: 45 Year
  Sex: Female
  Weight: 75 kg

DRUGS (91)
  1. POTASSIUM [Concomitant]
     Active Substance: POTASSIUM
     Indication: MUSCLE SPASMS
     Dosage: 20 MG, 1X/DAY
     Dates: start: 2015
  2. CYCLOBENZAPRINE. [Concomitant]
     Active Substance: CYCLOBENZAPRINE
     Indication: MUSCLE SPASMS
     Dosage: 10 MG, 1X/DAY (BEDTIME )
     Route: 048
  3. PREGABALIN. [Concomitant]
     Active Substance: PREGABALIN
     Indication: FIBROMYALGIA
  4. CODEINE [Concomitant]
     Active Substance: CODEINE
     Dosage: 30 MG, AS NEEDED
  5. ERGOCALCIFEROL. [Concomitant]
     Active Substance: ERGOCALCIFEROL
     Indication: VITAMIN D DEFICIENCY
     Dosage: UNK UNK, MONTHLY (50,000 UNITS BIMONTHLY)
  6. FLUTICASONE PROPIONATE. [Concomitant]
     Active Substance: FLUTICASONE PROPIONATE
     Dosage: UNK UNK, 1X/DAY (DOSAGE MAY BE REDUCED TO 1 SPRAY PER NOSTRIL ONCE DAILY)
     Route: 045
  7. LOPERAMIDE HCL [Concomitant]
     Active Substance: LOPERAMIDE HYDROCHLORIDE
     Dosage: 1 MG, DAILY (TAKE ONE (1) CAPSULE)
     Route: 048
  8. VENLAFAXINE HCL [Concomitant]
     Active Substance: VENLAFAXINE HYDROCHLORIDE
     Dosage: 375 MG, DAILY (TAKE FIVE (5) CAPSULES BY MOUTH EVERY DAY)
     Route: 048
  9. FOLIC ACID. [Concomitant]
     Active Substance: FOLIC ACID
     Dosage: 1 MG, DAILY
     Route: 048
  10. BACITRACIN. [Concomitant]
     Active Substance: BACITRACIN
  11. AMOXICILLIN. [Concomitant]
     Active Substance: AMOXICILLIN
     Indication: INFECTION
     Dosage: 125 MG, 2X/DAY
     Route: 048
  12. GENOTROPIN MQ [Suspect]
     Active Substance: SOMATROPIN
     Dosage: UNK
  13. GENOTROPIN MQ [Suspect]
     Active Substance: SOMATROPIN
     Dosage: 1 MG, ALTERNATE DAY
  14. POTASSIUM [Concomitant]
     Active Substance: POTASSIUM
     Dosage: 20 MEQ, DAILY
     Route: 048
  15. PROPRANOLOL [Concomitant]
     Active Substance: PROPRANOLOL HYDROCHLORIDE
     Indication: TREMOR
     Dosage: 10 MG, 1X/DAY (ONCE IN THE MORNING )
  16. LIOTHYRONINE [Concomitant]
     Active Substance: LIOTHYRONINE
     Indication: CHRONIC FATIGUE SYNDROME
     Dosage: 25 UG, DAILY
     Route: 048
  17. QUETIAPINE FUMARATE. [Concomitant]
     Active Substance: QUETIAPINE FUMARATE
     Dosage: 200 MG, 1X/DAY (AT BEDTIME)
     Route: 048
  18. HYDROCODONE [Concomitant]
     Active Substance: HYDROCODONE
     Dosage: UNK (TAKE 1 TABLET BY MOUTH EVERY 6 HOURS)
     Route: 048
  19. HYDROCODONE [Concomitant]
     Active Substance: HYDROCODONE
     Dosage: UNK, AS NEEDED (TAKE 1 TABLET BY MOUTH EVERY 6 HOURS)
     Route: 048
  20. HYDROCODONE [Concomitant]
     Active Substance: HYDROCODONE
     Dosage: UNK, AS NEEDED (TAKE 1 TABLET BY MOUTH EVERY 6 HOURS)
     Route: 048
  21. HYDROXYZINE HCL [Concomitant]
     Active Substance: HYDROXYZINE HYDROCHLORIDE
     Dosage: 10 MG, AS NEEDED
     Route: 048
  22. CETIRIZINE HCL [Concomitant]
     Active Substance: CETIRIZINE HYDROCHLORIDE
     Indication: HYPERSENSITIVITY
     Dosage: 10 MG, DAILY
     Route: 048
  23. TYLENOL WITH CODEINE [Concomitant]
     Active Substance: ACETAMINOPHEN\CODEINE PHOSPHATE
     Indication: PAIN
     Dosage: 300 MG, 3X/DAY
  24. ESTROGENS [Concomitant]
     Active Substance: ESTROGENS
     Dosage: 1.25 MG, DAILY
     Route: 048
     Dates: start: 2011
  25. VENLAFAXINE [Concomitant]
     Active Substance: VENLAFAXINE HYDROCHLORIDE
     Indication: DEPRESSION
     Dosage: 225 MG, 1X/DAY
  26. LIOTHYRONINE [Concomitant]
     Active Substance: LIOTHYRONINE
     Dosage: 25 UG, DAILY
     Route: 048
  27. MELOXICAM. [Concomitant]
     Active Substance: MELOXICAM
     Dosage: 15 MG, DAILY
     Route: 048
     Dates: end: 20171013
  28. QUETIAPINE. [Concomitant]
     Active Substance: QUETIAPINE
     Indication: DEPRESSION
     Dosage: 200 MG, UNK
  29. HYDROCODONE [Concomitant]
     Active Substance: HYDROCODONE
     Indication: PAIN
     Dosage: UNK UNK, AS NEEDED (10-325 MG TABLETS; EVERY 6 HOURS AS NEEDED)
     Route: 048
  30. ERGOCALCIFEROL. [Concomitant]
     Active Substance: ERGOCALCIFEROL
     Dosage: 1 DF, WEEKLY (50,000UNIT CAP TAKE 1 CAPSULE BY MOUTH ONCE WEEKLY)
     Route: 048
  31. ACETAMINOPHEN AND CODEINE [Concomitant]
     Active Substance: ACETAMINOPHEN\CODEINE PHOSPHATE
     Indication: PAIN
     Dosage: UNK UNK, AS NEEDED (CODEINE 30/ACETAMINOPHEN 300MG TAB QTY: 12 FOR 3 DAYS SIG: TAKE 2 TABLETS)
     Route: 048
  32. GENOTROPIN MQ [Suspect]
     Active Substance: SOMATROPIN
     Indication: POSTOPERATIVE HYPOPITUITARISM
     Dosage: 1 MG, ALTERNATE DAY
     Dates: start: 2014
  33. OXCARBAZEPINE. [Concomitant]
     Active Substance: OXCARBAZEPINE
     Dosage: 100 MG, 3X/DAY
     Route: 048
  34. OMEPRAZOLE. [Concomitant]
     Active Substance: OMEPRAZOLE
     Indication: GASTROOESOPHAGEAL REFLUX DISEASE
     Dosage: 20 MG, DAILY
     Route: 048
  35. VENLAFAXINE [Concomitant]
     Active Substance: VENLAFAXINE HYDROCHLORIDE
     Dosage: 150 MG, 2X/DAY
  36. SYNTHROID [Concomitant]
     Active Substance: LEVOTHYROXINE SODIUM
     Indication: THYROID DISORDER
     Dosage: 0.1 MG, DAILY
     Route: 048
  37. LIOTHYRONINE [Concomitant]
     Active Substance: LIOTHYRONINE
     Indication: THYROID DISORDER
     Dosage: 25 MG, 1X/DAY
     Route: 048
  38. CLONAZEPAM. [Concomitant]
     Active Substance: CLONAZEPAM
     Dosage: 1 MG, 2X/DAY
     Route: 048
     Dates: start: 2010
  39. MELOXICAM. [Concomitant]
     Active Substance: MELOXICAM
     Indication: ARTHRITIS
     Dosage: 15 MG, 1X/DAY
  40. HYDROCODONE [Concomitant]
     Active Substance: HYDROCODONE
     Dosage: UNK, AS NEEDED (TAKE 1 TABLET BY MOUTH EVERY 6 HOURS)
     Route: 048
  41. CYANOCOBALAMIN. [Concomitant]
     Active Substance: CYANOCOBALAMIN
     Dosage: 1 MG, MONTHLY
  42. LEVOTHYROXINE. [Concomitant]
     Active Substance: LEVOTHYROXINE
     Dosage: 50 UG, DAILY
  43. LEVOTHYROXINE. [Concomitant]
     Active Substance: LEVOTHYROXINE
     Dosage: 0.1 MG, DAILY
  44. CYCLOBENZAPRINE HCL [Concomitant]
     Active Substance: CYCLOBENZAPRINE HYDROCHLORIDE
     Indication: MUSCLE SPASMS
     Dosage: 10 MG, AS NEEDED
     Route: 048
  45. PROPRANOLOL HCL [Concomitant]
     Active Substance: PROPRANOLOL HYDROCHLORIDE
     Indication: TREMOR
     Dosage: UNK, DAILY (TAKE 1/2 TAB EVERYDAY TAKE 10-30 MG AT BEDTIME)
     Route: 048
  46. VENLAFAXINE HCL [Concomitant]
     Active Substance: VENLAFAXINE HYDROCHLORIDE
     Dosage: 150 MG, 2X/DAY
     Route: 048
  47. GENOTROPIN MQ [Suspect]
     Active Substance: SOMATROPIN
     Dosage: 0.6 MG, ALTERNATE DAY
  48. ESTROGENS [Concomitant]
     Active Substance: ESTROGENS
     Indication: HORMONE REPLACEMENT THERAPY
     Dosage: 1.25 MG, 1X/DAY
     Dates: start: 2011
  49. VITAMIN D [Concomitant]
     Active Substance: VITAMIN D NOS
     Indication: SUPPLEMENTATION THERAPY
     Dosage: 50.30 IU, ONE TWICE A MONTH
     Route: 048
  50. VENLAFAXINE [Concomitant]
     Active Substance: VENLAFAXINE HYDROCHLORIDE
     Indication: ASTHENIA
     Dosage: 150 MG, UNK
  51. HYDROXYZINE [Concomitant]
     Active Substance: HYDROXYZINE HYDROCHLORIDE
     Indication: PRURITUS
     Dosage: 10 MG, 3X/DAY
     Route: 048
  52. SYNTHROID [Concomitant]
     Active Substance: LEVOTHYROXINE SODIUM
     Dosage: UNK (DOSE INCREASED)
     Dates: start: 20170417
  53. QUETIAPINE. [Concomitant]
     Active Substance: QUETIAPINE
     Dosage: 300 MG, 1X/DAY(EVERY NIGHT BEFORE BED )
  54. HYDROCODONE [Concomitant]
     Active Substance: HYDROCODONE
     Dosage: UNK (TAKE 1 TABLET BY MOUTH EVERY 6 HOURS)
     Route: 048
  55. ONDANSETRON [Concomitant]
     Active Substance: ONDANSETRON
     Dosage: 12 MG, AS NEEDED (4 MG Q 8 HR PRN)
  56. CLINDAMYCIN HCL [Concomitant]
     Active Substance: CLINDAMYCIN HYDROCHLORIDE
     Indication: INFECTION
     Dosage: 300 MG, 3X/DAY
     Route: 048
  57. GADOTERIDOL [Concomitant]
     Active Substance: GADOTERIDOL
     Dosage: 17 ML, UNK
  58. GENOTROPIN MQ [Suspect]
     Active Substance: SOMATROPIN
     Dosage: 1 MG, UNK
     Dates: end: 20170814
  59. MORPHINE [Concomitant]
     Active Substance: MORPHINE
     Indication: PAIN
     Dosage: 300 MG, 4X/DAY (EVERY 6 HOURS )
  60. CLONAZEPAM. [Concomitant]
     Active Substance: CLONAZEPAM
     Indication: ANXIETY
     Dosage: 1 MG, 1X/DAY (AT BEDTIME )
  61. METHOTREXATE SODIUM. [Concomitant]
     Active Substance: METHOTREXATE SODIUM
     Indication: RHEUMATOID ARTHRITIS
     Dosage: 15 MG, WEEKLY (2.5MG, 6 TABLETS WEEKLY)
     Dates: start: 2017
  62. METHOTREXATE SODIUM. [Concomitant]
     Active Substance: METHOTREXATE SODIUM
     Dosage: 2.5 MG, WEEKLY
     Route: 048
  63. PREGABALIN. [Concomitant]
     Active Substance: PREGABALIN
     Indication: MUSCLE SPASMS
     Dosage: 75 MG, 2X/DAY
     Route: 048
  64. CYANOCOBALAMIN. [Concomitant]
     Active Substance: CYANOCOBALAMIN
     Dosage: 1 ML, MONTHLY
     Route: 030
  65. CARBOXYMETHYLCELLULOSE [Concomitant]
     Active Substance: CARBOXYMETHYLCELLULOSE
     Dosage: 1 GTT, 4X/DAY
  66. AMOXICILLIN. [Concomitant]
     Active Substance: AMOXICILLIN
     Indication: INFECTION
     Dosage: 500 MG, 2X/DAY
     Route: 048
  67. KETOROLAC [Concomitant]
     Active Substance: KETOROLAC TROMETHAMINE
     Dosage: UNK (INJECT 60MG (2ML) INTRAMUSCULARLY ONCE TO BE GIVEN IN CLINIC)
     Route: 030
  68. PROPRANOLOL [Concomitant]
     Active Substance: PROPRANOLOL HYDROCHLORIDE
     Indication: EPINEPHRINE INCREASED
     Dosage: 30 MG, 1X/DAY (AT BEDTIME)
  69. PROPRANOLOL [Concomitant]
     Active Substance: PROPRANOLOL HYDROCHLORIDE
     Dosage: 2 DF, DAILY (1.5 TABLETS AT NIGHT AND 0.5 TABLETS IN MORNING)
     Route: 048
  70. CLONAZEPAM. [Concomitant]
     Active Substance: CLONAZEPAM
     Dosage: 1 MG, 2X/DAY
     Route: 048
     Dates: start: 2010
  71. CETIRIZINE [Concomitant]
     Active Substance: CETIRIZINE HYDROCHLORIDE
     Indication: HYPERSENSITIVITY
     Dosage: 10 MG, DAILY
     Route: 048
  72. MAGNESIUM [Concomitant]
     Active Substance: MAGNESIUM
     Indication: MUSCLE SPASMS
     Dosage: 250 MG, 1X/DAY
  73. HYDROCODONE [Concomitant]
     Active Substance: HYDROCODONE
     Dosage: UNK (TAKE 1 TABLET BY MOUTH EVERY 6 HOURS)
     Route: 048
  74. HYDROCODONE [Concomitant]
     Active Substance: HYDROCODONE
     Dosage: UNK, AS NEEDED (TAKE 1 TABLET BY MOUTH EVERY 6 HOURS)
     Route: 048
  75. FLUNISOLIDE. [Concomitant]
     Active Substance: FLUNISOLIDE
     Dosage: UNK UNK, AS NEEDED (NASAL SPRAY PRN)
  76. LIDOCAINE. [Concomitant]
     Active Substance: LIDOCAINE
     Dosage: UNK UNK, AS NEEDED
  77. FLUTICASONE PROPIONATE. [Concomitant]
     Active Substance: FLUTICASONE PROPIONATE
     Indication: ROUTINE HEALTH MAINTENANCE
     Dosage: UNK UNK, 2X/DAY (1SPRAY IN EACH NOSTRIL TWICE DAILY BLOW NOSE PRIOR TO USE)
     Route: 045
  78. ONDANSETRON HYDROCHLORIDE. [Concomitant]
     Active Substance: ONDANSETRON HYDROCHLORIDE
     Dosage: 4 MG, AS NEEDED
     Route: 048
  79. SILVER SULFADIAZINE. [Concomitant]
     Active Substance: SILVER SULFADIAZINE
     Dosage: UNK (SILVER SULFADIAZINE 1% CRM, 50GM TU)
  80. PNEUMOCOCCAL POLYSACCHARIDE VACCINE, 23-VALENT [Concomitant]
     Active Substance: PNEUMOCOCCAL VACCINE, POLYVALENT 23
     Dosage: 0.5 ML, UNK
     Route: 030
  81. GENOTROPIN MQ [Suspect]
     Active Substance: SOMATROPIN
     Dosage: 1 MG, 1X/DAY
     Dates: start: 2015
  82. GENOTROPIN MQ [Suspect]
     Active Substance: SOMATROPIN
     Dosage: 1 MG, ALTERNATE DAY  (IN STOMACH, THIGH, OR BOTTOM)
     Dates: start: 201507
  83. GENOTROPIN MQ [Suspect]
     Active Substance: SOMATROPIN
     Dosage: 1 MG, DAILY
  84. POTASSIUM [Concomitant]
     Active Substance: POTASSIUM
     Indication: ELECTROLYTE SUBSTITUTION THERAPY
     Dosage: 20 MG, DAILY
     Route: 048
     Dates: start: 2015
  85. OXCARBAZEPINE. [Concomitant]
     Active Substance: OXCARBAZEPINE
     Indication: DEPRESSION
     Dosage: 300 MG, 3X/DAY
  86. ONDANSETRON HCL [Concomitant]
     Active Substance: ONDANSETRON HYDROCHLORIDE
     Dosage: 4 MG, 3X/DAY (EVERY 8 HOURS IF NEEDED)
     Route: 048
  87. HYDROCODONE [Concomitant]
     Active Substance: HYDROCODONE
     Indication: RHEUMATOID ARTHRITIS
     Dosage: UNK UNK, AS NEEDED (5MG/325MG TAB TAKE 1 TABLET BY MOUTH EVERY 6 HOURS AS NEEDED)
     Route: 048
  88. HYDROCODONE [Concomitant]
     Active Substance: HYDROCODONE
     Dosage: UNK, AS NEEDED (TAKE 1 TABLET BY MOUTH EVERY 6 HOURS)
     Route: 048
  89. ESTROGENS CONJUGATED [Concomitant]
     Active Substance: ESTROGENS, CONJUGATED
     Dosage: 1 G, WEEKLY (21 DAYS THEN 1-3 TIMES WEEKLY)
     Route: 067
  90. TETANUS AND DIPHTHERIA TOXOIDS ADSORBED (VACCINE) [Concomitant]
     Active Substance: CLOSTRIDIUM TETANI\CLOSTRIDIUM TETANI TOXOID ANTIGEN (FORMALDEHYDE INACTIVATED)\CORYNEBACTERIUM DIPHTHERIAE\CORYNEBACTERIUM DIPHTHERIAE TOXOID ANTIGEN (FORMALDEHYDE INACTIVATED)
     Dosage: 0.5 ML, SINGLE (0.5 FOR 1 DAYS SIG: INJECT 0.5ML INTRAMUSCULARLY ONCE)
     Route: 030
  91. ARIPIPRAZOLE. [Concomitant]
     Active Substance: ARIPIPRAZOLE
     Dosage: 10 MG, DAILY
     Route: 048

REACTIONS (49)
  - Off label use [Unknown]
  - Product use issue [Unknown]
  - Injection site pain [Unknown]
  - Alopecia [Unknown]
  - Drug screen positive [Unknown]
  - Blue toe syndrome [Not Recovered/Not Resolved]
  - Intentional product misuse [Unknown]
  - Dysphonia [Not Recovered/Not Resolved]
  - Dysphagia [Unknown]
  - Throat irritation [Unknown]
  - Condition aggravated [Not Recovered/Not Resolved]
  - Goitre [Not Recovered/Not Resolved]
  - Face injury [Recovered/Resolved]
  - Tremor [Unknown]
  - Muscular weakness [Unknown]
  - Ankle fracture [Not Recovered/Not Resolved]
  - Feeling abnormal [Not Recovered/Not Resolved]
  - Aphonia [Unknown]
  - Back disorder [Unknown]
  - Fatigue [Not Recovered/Not Resolved]
  - Oropharyngeal pain [Unknown]
  - Pain in extremity [Unknown]
  - Arthralgia [Unknown]
  - Blood cholesterol increased [Unknown]
  - Peripheral swelling [Recovered/Resolved]
  - Bone pain [Unknown]
  - Weight increased [Not Recovered/Not Resolved]
  - Mouth injury [Recovered/Resolved]
  - Blood triglycerides increased [Unknown]
  - Dizziness [Recovered/Resolved]
  - Fall [Recovered/Resolved with Sequelae]
  - Lower limb fracture [Recovering/Resolving]
  - Depression [Not Recovered/Not Resolved]
  - Limb injury [Recovered/Resolved]
  - Thermal burn [Recovering/Resolving]
  - High density lipoprotein increased [Unknown]
  - Oropharyngeal pain [Not Recovered/Not Resolved]
  - Paraesthesia [Not Recovered/Not Resolved]
  - Product dose omission [Not Recovered/Not Resolved]
  - Pharyngeal swelling [Unknown]
  - Injection site reaction [Unknown]
  - Productive cough [Unknown]
  - Decreased activity [Unknown]
  - Ligament sprain [Unknown]
  - Pyrexia [Unknown]
  - Vomiting [Unknown]
  - Nasopharyngitis [Not Recovered/Not Resolved]
  - Hypoaesthesia [Not Recovered/Not Resolved]
  - Chest pain [Unknown]

NARRATIVE: CASE EVENT DATE: 2014
